FAERS Safety Report 12607604 (Version 1)
Quarter: 2016Q3

REPORT INFORMATION
  Report Type: Report from Study
  Country: US (occurrence: US)
  Receive Date: 20160729
  Receipt Date: 20160729
  Transmission Date: 20161109
  Serious: Yes (Death, Hospitalization)
  Sender: FDA-Public Use
  Company Number: US-JNJFOC-20160712181

PATIENT
  Age: 70 Year
  Sex: Male

DRUGS (2)
  1. IMBRUVICA [Suspect]
     Active Substance: IBRUTINIB
     Indication: LYMPHOMA
     Route: 048
     Dates: start: 20150825
  2. POTASSIUM [Concomitant]
     Active Substance: POTASSIUM

REACTIONS (2)
  - Respiratory failure [Fatal]
  - Choking [Not Recovered/Not Resolved]

NARRATIVE: CASE EVENT DATE: 201606
